FAERS Safety Report 13156691 (Version 1)
Quarter: 2017Q1

REPORT INFORMATION
  Report Type: Spontaneous
  Country: US (occurrence: US)
  Receive Date: 20170126
  Receipt Date: 20170126
  Transmission Date: 20170428
  Serious: Yes (Hospitalization)
  Sender: FDA-Public Use
  Company Number: US-TEVA-733333USA

PATIENT
  Age: 58 Year
  Sex: Female
  Weight: 94.11 kg

DRUGS (14)
  1. TRIAMCINOLONE [Concomitant]
     Active Substance: TRIAMCINOLONE
  2. CYTARABINE. [Suspect]
     Active Substance: CYTARABINE
     Indication: ACUTE MYELOID LEUKAEMIA
     Dosage: INDUCTION; CONTINUOUS INFUSION ON DAYS 1-7
     Route: 042
     Dates: start: 20131214, end: 20131220
  3. PF-04449913 [Concomitant]
     Active Substance: GLASDEGIB
     Indication: ACUTE MYELOID LEUKAEMIA
     Dosage: 100 MILLIGRAM DAILY;
     Route: 048
     Dates: start: 20131211, end: 20140115
  4. FAMOTIDINE. [Concomitant]
     Active Substance: FAMOTIDINE
     Dates: start: 20131204, end: 20140203
  5. INSULIN [Concomitant]
     Active Substance: INSULIN NOS
  6. ENOXAPARIN [Concomitant]
     Active Substance: ENOXAPARIN
     Dates: start: 20140131, end: 20140206
  7. COLACE [Concomitant]
     Active Substance: DOCUSATE SODIUM
  8. RESTORIL [Concomitant]
     Active Substance: TEMAZEPAM
  9. DAUNORUBICIN [Suspect]
     Active Substance: DAUNORUBICIN
     Indication: ACUTE MYELOID LEUKAEMIA
     Dosage: INDUCTION, ONCE DAILY ON DAYS 1-3
     Route: 040
     Dates: start: 20131214, end: 20131216
  10. ACYCLOVIR. [Concomitant]
     Active Substance: ACYCLOVIR
     Dates: start: 20131204
  11. INSULIN GLARGINE [Concomitant]
     Active Substance: INSULIN GLARGINE
  12. TESSALON [Concomitant]
     Active Substance: BENZONATATE
  13. HEPARIN [Concomitant]
     Active Substance: HEPARIN SODIUM
  14. BACTRIM [Concomitant]
     Active Substance: SULFAMETHOXAZOLE\TRIMETHOPRIM

REACTIONS (1)
  - Pneumonitis [Recovered/Resolved with Sequelae]

NARRATIVE: CASE EVENT DATE: 20140131
